FAERS Safety Report 25514871 (Version 1)
Quarter: 2025Q3

REPORT INFORMATION
  Report Type: Spontaneous
  Country: US (occurrence: US)
  Receive Date: 20250703
  Receipt Date: 20250703
  Transmission Date: 20251021
  Serious: No
  Sender: RADIUS PHARM
  Company Number: US-RADIUS HEALTH, INC.-2023US005752

PATIENT
  Sex: Female

DRUGS (1)
  1. TYMLOS [Suspect]
     Active Substance: ABALOPARATIDE
     Indication: Senile osteoporosis
     Route: 058
     Dates: start: 20231011, end: 20240828

REACTIONS (11)
  - Pain [Unknown]
  - Bone pain [Unknown]
  - Injection site pain [Unknown]
  - Heart rate increased [Unknown]
  - Rheumatoid arthritis [Unknown]
  - Peripheral vascular disorder [Unknown]
  - Arthralgia [Unknown]
  - Pain in extremity [Unknown]
  - Fracture [Unknown]
  - Pneumonia [Unknown]
  - Palpitations [Unknown]
